FAERS Safety Report 25452614 (Version 2)
Quarter: 2025Q3

REPORT INFORMATION
  Report Type: Spontaneous
  Country: EU (occurrence: EU)
  Receive Date: 20250618
  Receipt Date: 20250710
  Transmission Date: 20251021
  Serious: Yes (Other)
  Sender: PFIZER
  Company Number: EU-PFIZER INC-202500112141

PATIENT
  Age: 66 Year
  Sex: Female
  Weight: 70 kg

DRUGS (6)
  1. FRAGMIN [Suspect]
     Active Substance: DALTEPARIN SODIUM
     Indication: Cerebral venous sinus thrombosis
     Dosage: 15000 IU/DAILY
     Dates: start: 20230223, end: 20230317
  2. FRAGMIN [Suspect]
     Active Substance: DALTEPARIN SODIUM
     Dosage: 5000 IU, 2X/DAY
     Dates: start: 20230710, end: 20241103
  3. FRAGMIN [Suspect]
     Active Substance: DALTEPARIN SODIUM
     Dosage: 5000 IU, 2X/DALY
     Dates: start: 20241127, end: 20241203
  4. FRAGMIN [Suspect]
     Active Substance: DALTEPARIN SODIUM
     Dosage: 10.000 IU/ 24 HRS (DAILY) MORE THAN 2 YEARS
     Dates: start: 20241211
  5. ASPIRIN [Concomitant]
     Active Substance: ASPIRIN
     Indication: Prophylaxis
     Dates: start: 20231020
  6. PERINDOPRIL [Concomitant]
     Active Substance: PERINDOPRIL
     Dosage: 5 MG, 1X/DAY

REACTIONS (5)
  - Angina pectoris [Recovering/Resolving]
  - Intentional product misuse [Unknown]
  - Platelet count increased [Not Recovered/Not Resolved]
  - Headache [Unknown]
  - Brain fog [Unknown]

NARRATIVE: CASE EVENT DATE: 20230822
